FAERS Safety Report 9995101 (Version 3)
Quarter: 2014Q1

REPORT INFORMATION
  Report Type: Spontaneous
  Country: JP (occurrence: JP)
  Receive Date: 20140311
  Receipt Date: 20140331
  Transmission Date: 20141002
  Serious: Yes (Other)
  Sender: FDA-Public Use
  Company Number: JP-ELI_LILLY_AND_COMPANY-JP201401002362

PATIENT
  Age: 70 Year
  Sex: Female
  Weight: 44 kg

DRUGS (2)
  1. CYMBALTA [Suspect]
     Indication: DEPRESSION
     Dosage: 20 MG, BID
     Route: 048
     Dates: start: 20131105, end: 20140107
  2. MAGMITT [Suspect]
     Indication: CONSTIPATION
     Dosage: 330 MG, TID
     Route: 048
     Dates: start: 20131203

REACTIONS (2)
  - Hyponatraemia [Recovered/Resolved]
  - Pituitary haemorrhage [Recovering/Resolving]
